FAERS Safety Report 8839661 (Version 1)
Quarter: 2012Q4

REPORT INFORMATION
  Report Type: 
  Country: US (occurrence: US)
  Receive Date: 20121015
  Receipt Date: 20121015
  Transmission Date: 20130627
  Serious: Yes (Other)
  Sender: FDA-Public Use
  Company Number: PHEH2012US019817

PATIENT
  Sex: Female

DRUGS (1)
  1. AFINITOR [Suspect]
     Indication: BREAST CANCER
     Dosage: 10 mg, QD

REACTIONS (9)
  - Neurosis [Recovering/Resolving]
  - Herpes ophthalmic [Recovering/Resolving]
  - Eye swelling [Recovering/Resolving]
  - Corneal lesion [Recovering/Resolving]
  - Face oedema [Recovering/Resolving]
  - Lip swelling [Recovering/Resolving]
  - Oral pain [Recovering/Resolving]
  - Blister [Recovering/Resolving]
  - Rash [Recovering/Resolving]
